FAERS Safety Report 12759540 (Version 3)
Quarter: 2016Q4

REPORT INFORMATION
  Report Type: Report from Study
  Country: TW (occurrence: TW)
  Receive Date: 20160919
  Receipt Date: 20161025
  Transmission Date: 20170207
  Serious: Yes (Other)
  Sender: FDA-Public Use
  Company Number: PHHY2016TW128194

PATIENT
  Age: 60 Year
  Sex: Female
  Weight: 50.6 kg

DRUGS (3)
  1. EXJADE [Suspect]
     Active Substance: DEFERASIROX
     Indication: PRODUCT USED FOR UNKNOWN INDICATION
     Dosage: 500 MG, UNK
     Route: 048
     Dates: start: 20160826, end: 20160911
  2. KASCOAL [Concomitant]
     Indication: ABDOMINAL DISTENSION
     Dosage: 40 MG, UNK
     Route: 065
     Dates: start: 20160912
  3. KASCOAL [Concomitant]
     Indication: ABDOMINAL DISCOMFORT

REACTIONS (3)
  - Haematochezia [Recovered/Resolved]
  - Haemorrhoids [Recovered/Resolved]
  - Abdominal pain [Recovered/Resolved]

NARRATIVE: CASE EVENT DATE: 20160826
